FAERS Safety Report 24366947 (Version 1)
Quarter: 2024Q3

REPORT INFORMATION
  Report Type: Spontaneous
  Country: HR (occurrence: HR)
  Receive Date: 20240926
  Receipt Date: 20240926
  Transmission Date: 20241016
  Serious: Yes (Other)
  Sender: RANBAXY
  Company Number: HR-SUN PHARMACEUTICAL INDUSTRIES LTD-2024R1-469535

PATIENT
  Age: 31 Year
  Sex: Female

DRUGS (14)
  1. ARIPIPRAZOLE [Interacting]
     Active Substance: ARIPIPRAZOLE
     Dosage: 400 MILLIGRAM
     Route: 030
  2. ARIPIPRAZOLE [Interacting]
     Active Substance: ARIPIPRAZOLE
     Indication: Psychotic disorder
     Dosage: 10 MILLIGRAM, DAILY
     Route: 048
  3. OLANZAPINE [Interacting]
     Active Substance: OLANZAPINE
     Indication: Psychotic disorder
     Dosage: 10 MILLIGRAM, DAILY
     Route: 048
  4. OLANZAPINE [Interacting]
     Active Substance: OLANZAPINE
     Dosage: 15 UNK
     Route: 048
  5. RISPERIDONE [Interacting]
     Active Substance: RISPERIDONE
     Indication: Psychotic disorder
     Dosage: 2 MILLIGRAM, DAILY
     Route: 048
  6. RISPERIDONE [Interacting]
     Active Substance: RISPERIDONE
     Dosage: 2 UNK
     Route: 048
  7. LEVOMEPROMAZINE [Interacting]
     Active Substance: LEVOMEPROMAZINE
     Indication: Psychotic disorder
     Dosage: 25 MILLIGRAM, DAILY
     Route: 048
  8. CARBAMAZEPINE [Interacting]
     Active Substance: CARBAMAZEPINE
     Indication: Psychotic disorder
     Dosage: 400 MILLIGRAM, DAILY
     Route: 048
  9. OXAZEPAM [Interacting]
     Active Substance: OXAZEPAM
     Indication: Psychotic disorder
     Dosage: 15 MILLIGRAM, DAILY
     Route: 048
  10. OXAZEPAM [Interacting]
     Active Substance: OXAZEPAM
     Dosage: 15 MILLIGRAM
     Route: 048
  11. OXAZEPAM [Interacting]
     Active Substance: OXAZEPAM
     Dosage: 30 UNK
     Route: 048
  12. ALPRAZOLAM [Interacting]
     Active Substance: ALPRAZOLAM
     Indication: Psychotic disorder
     Dosage: 0.5 MILLIGRAM
     Route: 048
  13. BISOPROLOL [Interacting]
     Active Substance: BISOPROLOL\BISOPROLOL FUMARATE
     Indication: Psychotic disorder
     Dosage: 5 MILLIGRAM
     Route: 048
  14. METOCLOPRAMIDE [Interacting]
     Active Substance: METOCLOPRAMIDE
     Indication: Psychotic disorder
     Dosage: 10 MILLIGRAM
     Route: 048

REACTIONS (2)
  - Drug ineffective [Unknown]
  - Drug interaction [Unknown]
